FAERS Safety Report 20150669 (Version 3)
Quarter: 2021Q4

REPORT INFORMATION
  Report Type: Report from Study
  Country: US (occurrence: US)
  Receive Date: 20211206
  Receipt Date: 20211216
  Transmission Date: 20220304
  Serious: Yes (Hospitalization)
  Sender: FDA-Public Use
  Company Number: US-BIOGEN-2021BI01068313

PATIENT
  Age: 52 Year
  Sex: Male

DRUGS (8)
  1. VUMERITY [Suspect]
     Active Substance: DIROXIMEL FUMARATE
     Indication: Multiple sclerosis
     Route: 048
     Dates: start: 20211108
  2. VUMERITY [Suspect]
     Active Substance: DIROXIMEL FUMARATE
     Route: 048
     Dates: start: 20211115, end: 20211122
  3. VUMERITY [Suspect]
     Active Substance: DIROXIMEL FUMARATE
     Route: 065
  4. SERTRALINE [Concomitant]
     Active Substance: SERTRALINE HYDROCHLORIDE
     Indication: Product used for unknown indication
     Route: 065
  5. LISINOPRIL [Concomitant]
     Active Substance: LISINOPRIL
     Indication: Product used for unknown indication
     Route: 065
  6. METFORMIN [Concomitant]
     Active Substance: METFORMIN HYDROCHLORIDE
     Indication: Product used for unknown indication
     Route: 065
  7. VITAMIN B12 [Concomitant]
     Active Substance: CYANOCOBALAMIN
     Indication: Product used for unknown indication
     Route: 065
  8. ASPIRIN [Concomitant]
     Active Substance: ASPIRIN
     Indication: Product used for unknown indication
     Route: 065

REACTIONS (5)
  - Gout [Not Recovered/Not Resolved]
  - Headache [Not Recovered/Not Resolved]
  - Dyspnoea [Unknown]
  - Cellulitis [Unknown]
  - Infection [Unknown]

NARRATIVE: CASE EVENT DATE: 20211101
